FAERS Safety Report 7064892-2 (Version None)
Quarter: 2010Q4

REPORT INFORMATION
  Report Type: 
  Country: None (occurrence: None)
  Receive Date: 20101027
  Receipt Date: 19911004
  Transmission Date: 20110411
  Serious: Yes (Death, Life-Threatening)
  Sender: FDA-Public Use
  Company Number: JP-ROCHE-910900034001

PATIENT
  Age: 63 Year
  Sex: Female

DRUGS (9)
  1. INTERFERON ALFA-2A [Suspect]
     Indication: MULTIPLE MYELOMA
     Route: 030
     Dates: start: 19900718, end: 19901128
  2. VOLTAREN [Concomitant]
     Route: 048
     Dates: start: 19900718, end: 19900805
  3. ALKERAN [Concomitant]
     Indication: MULTIPLE MYELOMA
     Route: 048
     Dates: start: 19900718, end: 19900721
  4. PREDNISOLONE [Concomitant]
     Indication: MULTIPLE MYELOMA
     Route: 048
     Dates: start: 19900718, end: 19900721
  5. PREDNISOLONE [Concomitant]
     Route: 048
     Dates: start: 19900817, end: 19900913
  6. PREDNISOLONE [Concomitant]
     Route: 048
     Dates: start: 19900914, end: 19900920
  7. PREDNISOLONE [Concomitant]
     Route: 048
     Dates: start: 19900921, end: 19900927
  8. PREDNISOLONE [Concomitant]
     Route: 048
     Dates: start: 19900928, end: 19901007
  9. PREDNISOLONE [Concomitant]
     Route: 048
     Dates: start: 19901122, end: 19901129

REACTIONS (5)
  - DECREASED APPETITE [None]
  - DEPRESSED LEVEL OF CONSCIOUSNESS [None]
  - DYSKINESIA [None]
  - GAIT DISTURBANCE [None]
  - RENAL FAILURE [None]
